FAERS Safety Report 9784224 (Version 1)
Quarter: 2013Q4

REPORT INFORMATION
  Report Type: Spontaneous
  Country: US (occurrence: US)
  Receive Date: 20131226
  Receipt Date: 20131226
  Transmission Date: 20140711
  Serious: No
  Sender: FDA-Public Use
  Company Number: US-BIOGENIDEC-2013BI120615

PATIENT
  Age: 55 Year
  Sex: Female

DRUGS (1)
  1. TECFIDERA [Suspect]
     Indication: MULTIPLE SCLEROSIS
     Route: 048
     Dates: start: 201310, end: 201312

REACTIONS (7)
  - Migraine [Unknown]
  - Adverse drug reaction [Unknown]
  - Hot flush [Unknown]
  - Pruritus [Unknown]
  - Diarrhoea [Recovered/Resolved]
  - Nausea [Unknown]
  - Abdominal pain upper [Recovered/Resolved]
